FAERS Safety Report 7751489 (Version 4)
Quarter: 2012Q4

REPORT INFORMATION
  Report Type: 
  Country: JP (occurrence: JP)
  Receive Date: 20110107
  Receipt Date: 20121210
  Transmission Date: 20130627
  Serious: Yes (Hospitalization, Disabling)
  Sender: FDA-Public Use
  Company Number: JP-NOVOPROD-320702

PATIENT
  Age: 32 Year
  Sex: Male
  Weight: 48 kg

DRUGS (3)
  1. LEVEMIR FLEXPEN [Suspect]
     Indication: PRODUCT USED FOR UNKNOWN INDICATION
     Dosage: 6 Iu, qd
     Route: 058
     Dates: start: 20100215
  2. NOVORAPID FLEXPEN [Suspect]
     Indication: PRODUCT USED FOR UNKNOWN INDICATION
     Dosage: UNK
     Route: 058
  3. ZOSYN [Concomitant]
     Dosage: 18 g, qd
     Route: 042
     Dates: start: 20100204

REACTIONS (2)
  - Hypoglycaemic coma [Recovered/Resolved with Sequelae]
  - Hypoglycaemic encephalopathy [Recovered/Resolved with Sequelae]
